FAERS Safety Report 23957791 (Version 4)
Quarter: 2025Q1

REPORT INFORMATION
  Report Type: Spontaneous
  Country: US (occurrence: US)
  Receive Date: 20240610
  Receipt Date: 20250328
  Transmission Date: 20250409
  Serious: Yes (Other)
  Sender: BRISTOL-MYERS SQUIBB COMPANY
  Company Number: US-BRISTOL-MYERS SQUIBB COMPANY-2024-093182

PATIENT
  Age: 66 Year
  Sex: Female
  Weight: 51.26 kg

DRUGS (2)
  1. REVLIMID [Suspect]
     Active Substance: LENALIDOMIDE
     Indication: Plasma cell myeloma
     Route: 048
  2. REVLIMID [Suspect]
     Active Substance: LENALIDOMIDE
     Dosage: DAILY ON DAYS 1-21 OF 28 DAYS
     Route: 048

REACTIONS (4)
  - Dysgeusia [Unknown]
  - Dry mouth [Recovering/Resolving]
  - Glossodynia [Unknown]
  - Sinus disorder [Recovering/Resolving]
